FAERS Safety Report 7966521-X (Version None)
Quarter: 2011Q4

REPORT INFORMATION
  Report Type: 
  Country: None (occurrence: None)
  Receive Date: 20111208
  Receipt Date: 20111129
  Transmission Date: 20120403
  Serious: Yes (Hospitalization)
  Sender: FDA-Public Use
  Company Number: US-ASTRAZENECA-2010SE57015

PATIENT
  Age: 67 Year
  Sex: Female

DRUGS (2)
  1. SYMBICORT [Suspect]
     Route: 055
  2. NEXIUM [Suspect]
     Route: 048

REACTIONS (6)
  - MALAISE [None]
  - THROAT IRRITATION [None]
  - DYSPNOEA EXERTIONAL [None]
  - EPIGASTRIC DISCOMFORT [None]
  - PNEUMONIA [None]
  - PYREXIA [None]
